FAERS Safety Report 15296715 (Version 2)
Quarter: 2018Q4

REPORT INFORMATION
  Report Type: Spontaneous
  Country: US (occurrence: US)
  Receive Date: 20180820
  Receipt Date: 20181015
  Transmission Date: 20190204
  Serious: Yes (Other)
  Sender: FDA-Public Use
  Company Number: US-JNJFOC-20180816233

PATIENT
  Age: 16 Year
  Sex: Female

DRUGS (5)
  1. 6-MP [Concomitant]
     Active Substance: MERCAPTOPURINE
     Indication: CROHN^S DISEASE
     Route: 065
     Dates: start: 2013, end: 2018
  2. REMICADE [Suspect]
     Active Substance: INFLIXIMAB
     Indication: CROHN^S DISEASE
     Dosage: 200 (UNSPECIFIED UNITS) THEN TO 400 (UNSPECIFIED UNITS)
     Route: 042
     Dates: start: 20150105
  3. HUMAN GROWTH HORMONE, RECOMBINANT [Concomitant]
     Active Substance: SOMATROPIN
     Indication: DWARFISM
     Route: 065
     Dates: start: 2012, end: 2017
  4. SINGULAIR [Concomitant]
     Active Substance: MONTELUKAST SODIUM
     Route: 065
     Dates: start: 2013
  5. VITAMIN D [Concomitant]
     Active Substance: CHOLECALCIFEROL
     Route: 065
     Dates: start: 2013

REACTIONS (5)
  - Staphylococcal skin infection [Recovering/Resolving]
  - Neoplasm malignant [Unknown]
  - Hidradenitis [Recovering/Resolving]
  - Psoriasis [Recovering/Resolving]
  - Costochondritis [Recovering/Resolving]

NARRATIVE: CASE EVENT DATE: 201709
